FAERS Safety Report 18407022 (Version 2)
Quarter: 2021Q3

REPORT INFORMATION
  Report Type: Spontaneous
  Country: US (occurrence: US)
  Receive Date: 20201021
  Receipt Date: 20210723
  Transmission Date: 20211014
  Serious: Yes (Other)
  Sender: FDA-Public Use
  Company Number: US-SA-2020SA292613

PATIENT
  Age: 36 Year
  Sex: Male

DRUGS (1)
  1. ZANTAC [Suspect]
     Active Substance: RANITIDINE HYDROCHLORIDE
     Indication: HYPERCHLORHYDRIA
     Dosage: 25 MG, QD
     Route: 065
     Dates: start: 199809, end: 200504

REACTIONS (2)
  - Neoplasm malignant [Unknown]
  - Thyroid cancer [Unknown]

NARRATIVE: CASE EVENT DATE: 20130501
